FAERS Safety Report 17775676 (Version 1)
Quarter: 2020Q2

REPORT INFORMATION
  Report Type: Spontaneous
  Country: NP (occurrence: NP)
  Receive Date: 20200513
  Receipt Date: 20200513
  Transmission Date: 20200714
  Serious: Yes (Hospitalization, Other)
  Sender: FDA-Public Use
  Company Number: NP-LUPIN PHARMACEUTICALS INC.-2020-02091

PATIENT
  Age: 26 Year
  Sex: Male

DRUGS (1)
  1. AMLODIPINE BESYLATE TABLETS USP, 2.5 MG [Suspect]
     Active Substance: AMLODIPINE BESYLATE
     Indication: PRODUCT USED FOR UNKNOWN INDICATION
     Dosage: 175 MILLIGRAM, TOTAL (2.5 MG EACH, INITIALLY 28 TABLETS INGESTED UNDER THE INFLUENCE OF ALCOHOL; A F
     Route: 048

REACTIONS (5)
  - Abdominal discomfort [Unknown]
  - Suicidal ideation [Unknown]
  - Ocular hyperaemia [Unknown]
  - Somnolence [Unknown]
  - Intentional overdose [Unknown]
